FAERS Safety Report 9981176 (Version 1)
Quarter: 2014Q1

REPORT INFORMATION
  Report Type: Report from Study
  Country: FR (occurrence: FR)
  Receive Date: 20140307
  Receipt Date: 20140307
  Transmission Date: 20141002
  Serious: Yes (Hospitalization)
  Sender: FDA-Public Use
  Company Number: FR-ROCHE-1354853

PATIENT
  Sex: Female

DRUGS (11)
  1. RITUXIMAB [Suspect]
     Indication: RHEUMATOID ARTHRITIS
     Route: 041
     Dates: start: 20080712
  2. RITUXIMAB [Suspect]
     Route: 041
     Dates: start: 20080713
  3. RITUXIMAB [Suspect]
     Route: 041
     Dates: start: 20100706
  4. RITUXIMAB [Suspect]
     Route: 041
     Dates: start: 20100720
  5. RITUXIMAB [Suspect]
     Route: 041
     Dates: start: 20120207
  6. RITUXIMAB [Suspect]
     Route: 041
     Dates: start: 20120221
  7. METHOTREXATE [Concomitant]
     Route: 065
  8. METHOTREXATE [Concomitant]
     Route: 065
  9. METHOTREXATE [Concomitant]
     Route: 065
  10. CORTANCYL [Concomitant]
     Route: 065
  11. CORTANCYL [Concomitant]
     Route: 065

REACTIONS (6)
  - Spinal fracture [Recovered/Resolved]
  - Flushing [Recovered/Resolved]
  - Anaemia [Recovered/Resolved]
  - Laryngitis [Recovered/Resolved]
  - Spontaneous haematoma [Recovered/Resolved]
  - Cataract [Recovered/Resolved]
